FAERS Safety Report 16221209 (Version 3)
Quarter: 2019Q3

REPORT INFORMATION
  Report Type: Spontaneous
  Country: US (occurrence: US)
  Receive Date: 20190422
  Receipt Date: 20190726
  Transmission Date: 20191004
  Serious: Yes (Death, Hospitalization, Other)
  Sender: FDA-Public Use
  Company Number: US-JNJFOC-20190412182

PATIENT
  Sex: Male

DRUGS (4)
  1. TPA [Suspect]
     Active Substance: ALTEPLASE
     Indication: DEEP VEIN THROMBOSIS
     Route: 065
     Dates: start: 20180527, end: 20180531
  2. XARELTO [Suspect]
     Active Substance: RIVAROXABAN
     Indication: DEEP VEIN THROMBOSIS
  3. XARELTO [Suspect]
     Active Substance: RIVAROXABAN
     Indication: PULMONARY EMBOLISM
     Route: 048
     Dates: start: 20180527, end: 20180531
  4. HEPARIN [Suspect]
     Active Substance: HEPARIN SODIUM
     Indication: DEEP VEIN THROMBOSIS
     Route: 065
     Dates: start: 20180527, end: 20180531

REACTIONS (2)
  - Death [Fatal]
  - Cerebral haemorrhage [Unknown]

NARRATIVE: CASE EVENT DATE: 20180531
